FAERS Safety Report 12675903 (Version 1)
Quarter: 2016Q3

REPORT INFORMATION
  Report Type: Spontaneous
  Country: US (occurrence: US)
  Receive Date: 20160823
  Receipt Date: 20160823
  Transmission Date: 20161109
  Serious: No
  Sender: FDA-Public Use
  Company Number: US-PAR PHARMACEUTICAL, INC-2016SCPR015521

PATIENT

DRUGS (15)
  1. CALCIUM CARBONATE. [Concomitant]
     Active Substance: CALCIUM CARBONATE
     Indication: BONE DISORDER
     Dosage: 10 ML, BID, VIA NASOGASTRIC ROUTE
     Route: 050
  2. VITAMIN C [Concomitant]
     Active Substance: ASCORBIC ACID
     Indication: PRODUCT USED FOR UNKNOWN INDICATION
     Dosage: UNK, BID, VIA NASOGASTRIC ROUTE
     Route: 050
  3. PROBIOTIC                          /06395501/ [Concomitant]
     Active Substance: BIFIDOBACTERIUM ANIMALIS SUBSP. LACTIS
     Indication: PRODUCT USED FOR UNKNOWN INDICATION
     Dosage: UNK, OD, VIA NASOGASTRIC ROUTE
     Route: 050
  4. ZOLEDRONIC ACID [Suspect]
     Active Substance: ZOLEDRONIC ACID
     Indication: OSTEOPOROSIS
     Dosage: 5MG/100ML, EVERY 6 MONTHS
     Route: 042
     Dates: start: 20160603
  5. METAMUCIL                          /00091301/ [Concomitant]
     Indication: FAECES HARD
     Dosage: 3 DF, WEEKLY, VIA NASOGATRIC ROUTE
     Route: 050
  6. KEPPRA [Concomitant]
     Active Substance: LEVETIRACETAM
     Indication: SEIZURE
     Dosage: UNK, BID, VIA NASOGASTRIC ROUTE
     Route: 050
  7. VITAMIN D3 [Concomitant]
     Active Substance: CHOLECALCIFEROL
     Indication: BLOOD CALCIUM DECREASED
     Dosage: UNK, UNKNOWN, VIA NASOGASTRIC ROUTE
     Route: 050
  8. RESTORE [Concomitant]
     Active Substance: GLYCERIN
     Indication: EYE LUBRICATION THERAPY
     Dosage: UNK, TID
     Route: 031
  9. ATENOLOL. [Concomitant]
     Active Substance: ATENOLOL
     Indication: CARDIAC DISORDER
     Dosage: HALF TABLET, OD, VIA NASOGASTRIC ROUTE
     Route: 050
  10. DIOCTO [Concomitant]
     Active Substance: DOCUSATE SODIUM
     Indication: FAECES HARD
     Dosage: 100 MG, BID, VIA NASOGASTRIC ROUTE
     Route: 050
  11. BACLOFEN. [Concomitant]
     Active Substance: BACLOFEN
     Indication: MUSCLE SPASTICITY
     Dosage: 934 MCG, DAILY
     Route: 037
     Dates: start: 199704
  12. PREVACID [Concomitant]
     Active Substance: LANSOPRAZOLE
     Indication: PROPHYLAXIS
     Dosage: UNK, OD, MORNING, VIA NASOGASTRIC ROUTE
     Route: 050
  13. NEURONTIN [Concomitant]
     Active Substance: GABAPENTIN
     Indication: MUSCLE SPASTICITY
     Dosage: 4 DF, DAILY, VIA NASOGASTRIC ROUTE
     Route: 050
  14. CARBATROL [Concomitant]
     Active Substance: CARBAMAZEPINE
     Indication: SEIZURE
     Dosage: 2 DF, EVERY 12 HOURS, VIA NASOGASTRIC ROUTE
     Route: 050
  15. L-LYSINE                           /00919901/ [Concomitant]
     Indication: PROPHYLAXIS
     Dosage: UNK, BID, VIA NASOGASTRIC ROUTE
     Route: 050

REACTIONS (14)
  - Pallor [Recovering/Resolving]
  - Ocular hyperaemia [Recovering/Resolving]
  - Pain [Recovered/Resolved]
  - Frequent bowel movements [Unknown]
  - Pyrexia [Recovered/Resolved]
  - Pollakiuria [Not Recovered/Not Resolved]
  - Product use issue [Unknown]
  - Lethargy [Recovered/Resolved]
  - Fatigue [Recovered/Resolved]
  - Hypopnoea [Recovering/Resolving]
  - Somnolence [Recovered/Resolved]
  - Influenza like illness [Unknown]
  - Vomiting [Unknown]
  - Nausea [Unknown]

NARRATIVE: CASE EVENT DATE: 20160603
